FAERS Safety Report 19942276 (Version 2)
Quarter: 2021Q4

REPORT INFORMATION
  Report Type: Spontaneous
  Country: US (occurrence: US)
  Receive Date: 20211011
  Receipt Date: 20211026
  Transmission Date: 20220303
  Serious: Yes (Other)
  Sender: FDA-Public Use
  Company Number: US-ORGANON-O2110USA000155

PATIENT
  Age: 30 Year
  Sex: Female
  Weight: 93.88 kg

DRUGS (1)
  1. NEXPLANON [Suspect]
     Active Substance: ETONOGESTREL
     Dosage: EVERY 3 YEARS, LEFT UPPER ARM
     Dates: start: 20180925

REACTIONS (5)
  - Device dislocation [Unknown]
  - Complication of device removal [Unknown]
  - Complication associated with device [Unknown]
  - Device issue [Unknown]
  - Incorrect product administration duration [Unknown]

NARRATIVE: CASE EVENT DATE: 20210925
